FAERS Safety Report 14077949 (Version 1)
Quarter: 2017Q4

REPORT INFORMATION
  Report Type: Spontaneous
  Country: US (occurrence: US)
  Receive Date: 20171012
  Receipt Date: 20171012
  Transmission Date: 20180321
  Serious: No
  Sender: FDA-Public Use
  Company Number: US-MYLANLABS-2017M1015452

PATIENT
  Sex: Female
  Weight: 54.42 kg

DRUGS (2)
  1. ESOMEPRAZOLE MAGNESIUM. [Concomitant]
     Active Substance: ESOMEPRAZOLE MAGNESIUM
     Indication: PRODUCT USED FOR UNKNOWN INDICATION
  2. LEVOTHYROXINE SODIUM TABLETS, USP [Suspect]
     Active Substance: LEVOTHYROXINE SODIUM
     Indication: THYROID DISORDER
     Dosage: 75 ?G, QD (1.5 OF THE 50 UG TABLETS)
     Route: 048
     Dates: start: 2016

REACTIONS (1)
  - Abdominal pain upper [Not Recovered/Not Resolved]
